FAERS Safety Report 13496388 (Version 7)
Quarter: 2017Q3

REPORT INFORMATION
  Report Type: Report from Study
  Country: JP (occurrence: JP)
  Receive Date: 20170428
  Receipt Date: 20170801
  Transmission Date: 20171127
  Serious: Yes (Hospitalization)
  Sender: FDA-Public Use
  Company Number: JP-CELGENEUS-USA-20170407040

PATIENT
  Age: 84 Year
  Sex: Female
  Weight: 54.9 kg

DRUGS (30)
  1. DEXAMETHASONE ORAL [Suspect]
     Active Substance: DEXAMETHASONE
     Dosage: 20 MILLIGRAM
     Route: 048
     Dates: start: 20170404, end: 20170404
  2. ELDECALCITOL [Concomitant]
     Active Substance: ELDECALCITOL
     Indication: PRODUCT USED FOR UNKNOWN INDICATION
     Dosage: .75 MICROGRAM
     Route: 048
     Dates: start: 20160801, end: 20170415
  3. GLYPHAGEN [Concomitant]
     Indication: PRODUCT USED FOR UNKNOWN INDICATION
     Dosage: 20 MILLILITER
     Route: 041
     Dates: start: 20160906, end: 20170404
  4. SODIUM PICOSULFATE [Concomitant]
     Active Substance: SODIUM PICOSULFATE
     Dosage: 1 DROPS
     Route: 048
     Dates: start: 20160812
  5. ZOLPIDEM TARTRATE. [Concomitant]
     Active Substance: ZOLPIDEM TARTRATE
     Indication: PRODUCT USED FOR UNKNOWN INDICATION
     Dosage: 5 MILLIGRAM
     Route: 048
     Dates: start: 20160910, end: 20170415
  6. FLURBIPROFEN. [Concomitant]
     Active Substance: FLURBIPROFEN
     Indication: PRODUCT USED FOR UNKNOWN INDICATION
     Dosage: 40 MILLIGRAM
     Route: 062
     Dates: start: 20170112
  7. DEXAMETHASONE ORAL [Suspect]
     Active Substance: DEXAMETHASONE
     Indication: PLASMA CELL MYELOMA
     Dosage: 20 MILLIGRAM
     Route: 048
     Dates: start: 20160906, end: 20170301
  8. DEXAMETHASONE ORAL [Suspect]
     Active Substance: DEXAMETHASONE
     Dosage: 20 MILLIGRAM
     Route: 048
     Dates: start: 20170328, end: 20170328
  9. IRSOGLADINE MALEATE [Concomitant]
     Active Substance: IRSOGLADINE MALEATE
     Indication: GASTRIC ULCER
     Dosage: 2 MILLIGRAM
     Route: 048
     Dates: start: 20160812, end: 20170415
  10. MIRABEGRON [Concomitant]
     Active Substance: MIRABEGRON
     Indication: POLLAKIURIA
     Route: 065
  11. REVLIMID [Suspect]
     Active Substance: LENALIDOMIDE
     Dosage: 10  MILLIGRAM
     Route: 048
     Dates: start: 20170328, end: 20170410
  12. REVLIMID [Suspect]
     Active Substance: LENALIDOMIDE
     Indication: PLASMA CELL MYELOMA
     Dosage: 10 MILLIGRAM
     Route: 048
     Dates: start: 20160906, end: 20170226
  13. REVLIMID [Suspect]
     Active Substance: LENALIDOMIDE
     Dosage: 10 MILLIGRAM
     Route: 048
     Dates: start: 20170301, end: 20170314
  14. DEXAMETHASONE ORAL [Suspect]
     Active Substance: DEXAMETHASONE
     Dosage: 20 MILLIGRAM
     Route: 048
     Dates: start: 20170411, end: 20170411
  15. AMLODIPINE BESYLATE. [Concomitant]
     Active Substance: AMLODIPINE BESYLATE
     Indication: HYPERTENSION
     Dosage: 5 MILLIGRAM
     Route: 048
     Dates: start: 20160813, end: 20170415
  16. FLUCONAZOLE. [Concomitant]
     Active Substance: FLUCONAZOLE
     Indication: HERPES ZOSTER
     Dosage: 100 MILLIGRAM
     Route: 048
     Dates: start: 20170328, end: 20170415
  17. PEMBROLIZUMAB (MK-3475) [Suspect]
     Active Substance: PEMBROLIZUMAB
     Dosage: 200 MILLIGRAM
     Route: 041
     Dates: start: 20170404, end: 20170410
  18. DEXAMETHASONE ORAL [Suspect]
     Active Substance: DEXAMETHASONE
     Dosage: 20 MILLIGRAM
     Route: 048
     Dates: start: 20170308, end: 20170308
  19. DOXAZOSIN [Concomitant]
     Active Substance: DOXAZOSIN\DOXAZOSIN MESYLATE
     Indication: HYPERTENSION
     Dosage: 2 MILLIGRAM
     Route: 048
     Dates: start: 20160801, end: 20170415
  20. SODIUM PICOSULFATE [Concomitant]
     Active Substance: SODIUM PICOSULFATE
     Indication: PRODUCT USED FOR UNKNOWN INDICATION
     Dosage: 1 DROPS
     Route: 048
     Dates: start: 20160812, end: 20170415
  21. ASPIRIN. [Concomitant]
     Active Substance: ASPIRIN
     Indication: THROMBOSIS
     Dosage: 100 MILLIGRAM
     Route: 048
     Dates: start: 20160906, end: 20170415
  22. MAGNESIUM OXIDE. [Concomitant]
     Active Substance: MAGNESIUM OXIDE
     Indication: CONSTIPATION
     Route: 065
  23. BROTIZOLAM [Concomitant]
     Active Substance: BROTIZOLAM
     Indication: PRODUCT USED FOR UNKNOWN INDICATION
     Dosage: .25 MILLIGRAM
     Route: 048
     Dates: start: 20160910, end: 20170415
  24. SENNA [Concomitant]
     Active Substance: SENNA LEAF\SENNOSIDES\SENNOSIDES A AND B
     Indication: PRODUCT USED FOR UNKNOWN INDICATION
     Dosage: .5 GRAM
     Route: 065
     Dates: start: 20161004, end: 20170415
  25. DEXCHLORPHENIRAMINE MALEATE. [Concomitant]
     Active Substance: DEXCHLORPHENIRAMINE MALEATE
     Indication: PRODUCT USED FOR UNKNOWN INDICATION
     Dosage: 5 MILLIGRAM
     Route: 050
     Dates: start: 20160906, end: 20170404
  26. PEMBROLIZUMAB (MK-3475) [Suspect]
     Active Substance: PEMBROLIZUMAB
     Indication: PLASMA CELL MYELOMA
     Dosage: 200 MILLIGRAM
     Route: 041
     Dates: start: 20160906, end: 20170222
  27. VONOPRAZAN FUMARATE [Concomitant]
     Active Substance: VONOPRAZAN FUMURATE
     Indication: GASTRIC ULCER
     Dosage: 10 MILLIGRAM
     Route: 048
     Dates: start: 20160815, end: 20170415
  28. SPIRONOLACTONE. [Concomitant]
     Active Substance: SPIRONOLACTONE
     Indication: PRODUCT USED FOR UNKNOWN INDICATION
     Dosage: 25 MILLIGRAM
     Route: 048
     Dates: start: 20170404, end: 20170415
  29. KETOPROFEN. [Concomitant]
     Active Substance: KETOPROFEN
     Indication: PLASMA CELL MYELOMA
     Route: 065
  30. RAMELTEON [Concomitant]
     Active Substance: RAMELTEON
     Indication: INSOMNIA
     Route: 065

REACTIONS (1)
  - Ischaemic enteritis [Recovered/Resolved]

NARRATIVE: CASE EVENT DATE: 20170415
